FAERS Safety Report 8373081-0 (Version None)
Quarter: 2012Q2

REPORT INFORMATION
  Report Type: 
  Country: None (occurrence: None)
  Receive Date: 20120521
  Receipt Date: 20120515
  Transmission Date: 20120825
  Serious: Yes (Other)
  Sender: FDA-Public Use
  Company Number: PHEH2011US08135

PATIENT
  Age: 51 Year
  Sex: Male

DRUGS (2)
  1. TOBI [Suspect]
     Indication: PNEUMONIA
     Dosage: 300 MG, UNK
  2. PULMOZYME [Concomitant]

REACTIONS (1)
  - PNEUMONIA [None]
